FAERS Safety Report 11497242 (Version 1)
Quarter: 2015Q3

REPORT INFORMATION
  Report Type: Spontaneous
  Country: QA (occurrence: QA)
  Receive Date: 20150911
  Receipt Date: 20150911
  Transmission Date: 20151125
  Serious: Yes (Other)
  Sender: FDA-Public Use
  Company Number: QA-AKORN PHARMACEUTICALS-2015AKN00517

PATIENT
  Age: 23 Year
  Sex: Female

DRUGS (3)
  1. FOLIC ACID. [Concomitant]
     Active Substance: FOLIC ACID
     Dosage: UNK, 1X/DAY
  2. LABETALOL HYDROCHLORIDE. [Suspect]
     Active Substance: LABETALOL HYDROCHLORIDE
     Dosage: 20 UNK, UNK
     Route: 042
  3. IRON FUMARATE [Concomitant]
     Dosage: 65 MG, 3X/DAY

REACTIONS (1)
  - Hyperkalaemia [Unknown]
